FAERS Safety Report 16318323 (Version 1)
Quarter: 2019Q2

REPORT INFORMATION
  Report Type: Spontaneous
  Country: DE (occurrence: DE)
  Receive Date: 20190516
  Receipt Date: 20190516
  Transmission Date: 20190711
  Serious: Yes (Hospitalization)
  Sender: FDA-Public Use
  Company Number: DE-AUROBINDO-AUR-APL-2019-025552

PATIENT

DRUGS (10)
  1. PREDNISOLON [Concomitant]
     Active Substance: PREDNISOLONE
     Indication: INFECTION
     Dosage: 2 UNK, DAILY, (LOCAL UNDER THE BREAST)
     Route: 065
     Dates: start: 20150430, end: 20150504
  2. GRANISETRON [Suspect]
     Active Substance: GRANISETRON
     Indication: VOMITING
     Dosage: 3 MILLIGRAM
     Route: 042
     Dates: start: 20140521, end: 20140521
  3. IRINOTECAN [Concomitant]
     Active Substance: IRINOTECAN
     Indication: COLORECTAL CANCER
     Dosage: 300 MILLIGRAM, FOR EVERY 2 WEEKS
     Route: 042
     Dates: start: 20140324, end: 20140604
  4. BEVACIZUMAB. [Suspect]
     Active Substance: BEVACIZUMAB
     Indication: COLORECTAL CANCER METASTATIC
     Dosage: 400 MILLIGRAM, FOR EVERY 2 WEEKS
     Route: 042
     Dates: start: 20140324
  5. 5-FU [Concomitant]
     Active Substance: FLUOROURACIL
     Indication: COLORECTAL CANCER
     Dosage: 4500 MILLIGRAM, FOR EVERY 2 WEEKS
     Route: 042
     Dates: start: 20140324, end: 20140606
  6. BEVACIZUMAB. [Suspect]
     Active Substance: BEVACIZUMAB
     Dosage: 430 MILLIGRAM, FOR EVERY 2 WEEKS
     Route: 042
     Dates: start: 20140521
  7. TRIAMTEREN [Concomitant]
     Active Substance: TRIAMTERENE
     Indication: HYPERTENSION
     Dosage: 50 MILLIGRAM, DAILY
     Route: 048
     Dates: start: 20140226
  8. FOLINIC ACID [Concomitant]
     Active Substance: LEUCOVORIN
     Indication: COLORECTAL CANCER
     Dosage: 700 MILLIGRAM, FOR EVERY 2 WEEKS
     Route: 042
     Dates: start: 20140324, end: 20140606
  9. GRANISETRON [Suspect]
     Active Substance: GRANISETRON
     Indication: COLORECTAL CANCER
     Dosage: UNK
     Route: 065
  10. CLOTRIMAZOL [Concomitant]
     Active Substance: CLOTRIMAZOLE
     Indication: INFECTION
     Dosage: 2 UNK, DAILY (LOCAL UNDER THE BREAST)
     Route: 065
     Dates: start: 20150430, end: 20150504

REACTIONS (2)
  - Alopecia [Not Recovered/Not Resolved]
  - Constipation [Recovered/Resolved]

NARRATIVE: CASE EVENT DATE: 20140507
